FAERS Safety Report 13647657 (Version 7)
Quarter: 2018Q1

REPORT INFORMATION
  Report Type: Report from Study
  Country: JP (occurrence: JP)
  Receive Date: 20170613
  Receipt Date: 20180316
  Transmission Date: 20180508
  Serious: Yes (Death, Life-Threatening, Hospitalization)
  Sender: FDA-Public Use
  Company Number: JP-B.I. PHARMACEUTICALS,INC./RIDGEFIELD-2017-NB-003230

PATIENT
  Age: 7 Decade
  Sex: Male
  Weight: 61.7 kg

DRUGS (1)
  1. PRAZAXA [Suspect]
     Active Substance: DABIGATRAN ETEXILATE MESYLATE
     Indication: ATRIAL FIBRILLATION
     Route: 048
     Dates: start: 20150329, end: 20170608

REACTIONS (2)
  - Brain stem haemorrhage [Fatal]
  - Brain oedema [Fatal]

NARRATIVE: CASE EVENT DATE: 20170608
